FAERS Safety Report 25655276 (Version 1)
Quarter: 2025Q3

REPORT INFORMATION
  Report Type: Spontaneous
  Country: US (occurrence: None)
  Receive Date: 20250806
  Receipt Date: 20250806
  Transmission Date: 20251021
  Serious: No
  Sender: FDA-CTU
  Company Number: None

PATIENT
  Age: 62 Year
  Sex: Female
  Weight: 88.2 kg

DRUGS (2)
  1. ZELBORAF [Suspect]
     Active Substance: VEMURAFENIB
     Indication: Langerhans^ cell histiocytosis
     Dosage: FREQUENCY : TWICE A DAY;?
     Route: 048
     Dates: start: 20250423
  2. MELATONIN [Suspect]
     Active Substance: MELATONIN

REACTIONS (3)
  - Insomnia [None]
  - Treatment noncompliance [None]
  - Drug ineffective [None]

NARRATIVE: CASE EVENT DATE: 20250806
